FAERS Safety Report 8409946-0 (Version None)
Quarter: 2012Q2

REPORT INFORMATION
  Report Type: 
  Country: None (occurrence: None)
  Receive Date: 20120605
  Receipt Date: 20120601
  Transmission Date: 20120825
  Serious: No
  Sender: FDA-Public Use
  Company Number: US-PFIZER INC-2012132729

PATIENT
  Sex: Female
  Weight: 48.073 kg

DRUGS (9)
  1. CALCIUM [Concomitant]
     Dosage: 1200 MG, 2X/DAY
  2. CELEXA [Concomitant]
     Dosage: 10 MG, 1X/DAY
  3. COENZYME Q10 [Concomitant]
     Dosage: 200 MG, ALTERNATE DAY
  4. DILTIAZEM [Concomitant]
     Indication: HYPERTENSION
     Dosage: 60 MG, AS NEEDED
  5. CLONAZEPAM [Concomitant]
     Dosage: 0.5 MG, 1X/DAY
  6. ELAVIL [Concomitant]
     Indication: HYPERTENSION
     Dosage: UNK
     Dates: end: 20120101
  7. LYRICA [Suspect]
     Indication: PAIN
     Dosage: 75 MG, 2X/DAY
     Dates: start: 20120401
  8. FENTANYL [Concomitant]
     Indication: PAIN
     Dosage: 12 UG, EVERY 72 HOURS
  9. VITAMIN B COMPLEX CAP [Concomitant]

REACTIONS (3)
  - DRY MOUTH [None]
  - HYPOAESTHESIA [None]
  - PAIN IN EXTREMITY [None]
